FAERS Safety Report 7994642-4 (Version None)
Quarter: 2011Q4

REPORT INFORMATION
  Report Type: 
  Country: None (occurrence: None)
  Receive Date: 20111220
  Receipt Date: 20111209
  Transmission Date: 20120403
  Serious: Yes (Death, Other)
  Sender: FDA-Public Use
  Company Number: US-BAYER-2011-118621

PATIENT
  Age: 23 Year
  Sex: Female

DRUGS (1)
  1. YASMIN [Suspect]
     Dosage: UNK
     Dates: start: 20050601, end: 20061101

REACTIONS (5)
  - CEREBROVASCULAR ACCIDENT [None]
  - INJURY [None]
  - CEREBRAL HAEMORRHAGE [None]
  - EXSANGUINATION [None]
  - THROMBOSIS [None]
